FAERS Safety Report 13291262 (Version 1)
Quarter: 2017Q1

REPORT INFORMATION
  Report Type: Spontaneous
  Country: US (occurrence: US)
  Receive Date: 20170302
  Receipt Date: 20170302
  Transmission Date: 20170428
  Serious: No
  Sender: FDA-Public Use
  Company Number: None

PATIENT
  Age: 76 Year
  Sex: Male

DRUGS (1)
  1. IMBRUVICA [Suspect]
     Active Substance: IBRUTINIB

REACTIONS (7)
  - Angioedema [None]
  - Swelling face [None]
  - Rash [None]
  - Photosensitivity reaction [None]
  - Peripheral swelling [None]
  - Oedema peripheral [None]
  - Erythema [None]

NARRATIVE: CASE EVENT DATE: 19780131
